FAERS Safety Report 14257927 (Version 1)
Quarter: 2017Q4

REPORT INFORMATION
  Report Type: Spontaneous
  Country: US (occurrence: US)
  Receive Date: 20171207
  Receipt Date: 20171207
  Transmission Date: 20180321
  Serious: Yes (Hospitalization)
  Sender: FDA-Public Use
  Company Number: US-CIPLA LTD.-2017US21942

PATIENT

DRUGS (2)
  1. CARVEDILOL. [Suspect]
     Active Substance: CARVEDILOL
     Dosage: UNK, 130 TABLETS
     Route: 048
  2. AMLODIPINE [Suspect]
     Active Substance: AMLODIPINE BESYLATE
     Dosage: UNK, 30 TABLETS
     Route: 048

REACTIONS (3)
  - Intentional overdose [Unknown]
  - Unresponsive to stimuli [Recovered/Resolved]
  - Hypotension [Recovered/Resolved]
